FAERS Safety Report 9687490 (Version 3)
Quarter: 2014Q1

REPORT INFORMATION
  Report Type: Spontaneous
  Country: DE (occurrence: DE)
  Receive Date: 20131114
  Receipt Date: 20140205
  Transmission Date: 20141002
  Serious: Yes (Life-Threatening, Hospitalization, Other)
  Sender: FDA-Public Use
  Company Number: DE-BRISTOL-MYERS SQUIBB COMPANY-19741982

PATIENT
  Age: 16 Year
  Sex: Female
  Weight: 70.7 kg

DRUGS (1)
  1. ABILIFY TABS 15 MG [Suspect]
     Indication: SCHIZOPHRENIA, DISORGANISED TYPE
     Route: 048
     Dates: start: 20130308

REACTIONS (1)
  - Acute myeloid leukaemia [Not Recovered/Not Resolved]
